FAERS Safety Report 16355284 (Version 2)
Quarter: 2019Q2

REPORT INFORMATION
  Report Type: Spontaneous
  Country: CN (occurrence: CN)
  Receive Date: 20190525
  Receipt Date: 20190612
  Transmission Date: 20190711
  Serious: Yes (Death, Hospitalization, Other)
  Sender: FDA-Public Use
  Company Number: CN-ROCHE-2325351

PATIENT
  Age: 77 Year
  Sex: Male

DRUGS (21)
  1. PACLITAXEL LIPOSOME [Concomitant]
     Active Substance: PACLITAXEL
     Indication: ADENOCARCINOMA
     Dosage: DAY1
     Route: 065
     Dates: start: 20151229, end: 20160511
  2. FLUOROURACIL. [Concomitant]
     Active Substance: FLUOROURACIL
     Indication: ADENOCARCINOMA
     Route: 048
     Dates: start: 20160712, end: 20160910
  3. FLUOROURACIL. [Concomitant]
     Active Substance: FLUOROURACIL
     Dosage: FROM DAY1 TO DAY14, SMALL PUMP MAINTENANCE
     Route: 065
     Dates: start: 20170502
  4. IRINOTECAN [Concomitant]
     Active Substance: IRINOTECAN
     Indication: ADENOCARCINOMA
     Dosage: DAY1
     Route: 065
     Dates: start: 20161014
  5. CALCIUM FOLINATE [Concomitant]
     Active Substance: LEUCOVORIN CALCIUM
     Indication: ADENOCARCINOMA
     Dosage: DAY1
     Route: 065
     Dates: start: 20161014
  6. XELODA [Suspect]
     Active Substance: CAPECITABINE
     Indication: ADENOCARCINOMA
     Dosage: FROM DAY1 TO DAY14
     Route: 048
     Dates: start: 20151229, end: 20160511
  7. LOBAPLATIN [Concomitant]
     Active Substance: LOBAPLATIN
     Indication: ADENOCARCINOMA
     Dosage: DAY1
     Route: 065
     Dates: start: 20161231
  8. LOBAPLATIN [Concomitant]
     Active Substance: LOBAPLATIN
     Dosage: DAY8
     Route: 065
     Dates: start: 20161231
  9. APATINIB [Concomitant]
     Active Substance: APATINIB
     Indication: ADENOCARCINOMA
     Route: 048
     Dates: start: 20170702
  10. FLUOROURACIL. [Concomitant]
     Active Substance: FLUOROURACIL
     Route: 042
     Dates: start: 20161014
  11. FLUOROURACIL. [Concomitant]
     Active Substance: FLUOROURACIL
     Dosage: CONTIOUS INTRAVENOUS INJECTION
     Route: 042
     Dates: start: 20161014
  12. FLUOROURACIL. [Concomitant]
     Active Substance: FLUOROURACIL
     Route: 042
     Dates: start: 20161105
  13. FLUOROURACIL. [Concomitant]
     Active Substance: FLUOROURACIL
     Dosage: FROM DAY1 TO DAY14, SMALL PUMP MAINTENANCE
     Route: 065
     Dates: start: 20170601
  14. RALTITREXED [Concomitant]
     Active Substance: RALTITREXED
     Indication: ADENOCARCINOMA
     Dosage: DAY1
     Route: 065
     Dates: start: 20161231
  15. CISPLATIN. [Concomitant]
     Active Substance: CISPLATIN
     Indication: ADENOCARCINOMA
     Dosage: FROM DAY1 TO DAY5 DAY8 TO DAY13
     Route: 065
     Dates: start: 20170502
  16. CISPLATIN. [Concomitant]
     Active Substance: CISPLATIN
     Dosage: FROM DAY1 TO DAY5 DAY8 TO DAY13
     Route: 065
     Dates: start: 20170601
  17. PACLITAXEL LIPOSOME [Concomitant]
     Active Substance: PACLITAXEL
     Dosage: DAY8
     Route: 065
     Dates: start: 20151229, end: 20160511
  18. FLUOROURACIL. [Concomitant]
     Active Substance: FLUOROURACIL
     Dosage: CONTIOUS INTRAVENOUS INJECTION
     Route: 042
     Dates: start: 20161105
  19. IRINOTECAN [Concomitant]
     Active Substance: IRINOTECAN
     Dosage: DAY1
     Route: 065
     Dates: start: 20161105
  20. CALCIUM FOLINATE [Concomitant]
     Active Substance: LEUCOVORIN CALCIUM
     Dosage: DAY1
     Route: 065
     Dates: start: 20161105
  21. GEMCITABINE HYDROCHLORIDE. [Concomitant]
     Active Substance: GEMCITABINE HYDROCHLORIDE
     Indication: ADENOCARCINOMA
     Dosage: DAY1 DAY8
     Route: 065
     Dates: start: 20170702

REACTIONS (12)
  - Aortic arteriosclerosis [Unknown]
  - Disease progression [Unknown]
  - Intestinal obstruction [Recovering/Resolving]
  - Decreased appetite [Not Recovered/Not Resolved]
  - Platelet count decreased [Recovering/Resolving]
  - Asthenia [Not Recovered/Not Resolved]
  - Bronchitis chronic [Unknown]
  - Renal cyst [Unknown]
  - Faeces discoloured [Recovering/Resolving]
  - Emphysema [Unknown]
  - Occult blood positive [Recovering/Resolving]
  - Death [Fatal]

NARRATIVE: CASE EVENT DATE: 20170812
